FAERS Safety Report 20756228 (Version 1)
Quarter: 2022Q2

REPORT INFORMATION
  Report Type: Spontaneous
  Country: US (occurrence: US)
  Receive Date: 20220427
  Receipt Date: 20220427
  Transmission Date: 20220721
  Serious: No
  Sender: FDA-Public Use
  Company Number: US-ORGANON-O2204USA000721

PATIENT
  Age: 14 Year
  Sex: Male

DRUGS (1)
  1. FOSAMAX [Suspect]
     Active Substance: ALENDRONATE SODIUM
     Dosage: 70 MILLIGRAM, QW
     Route: 048

REACTIONS (1)
  - Product use issue [Unknown]
